FAERS Safety Report 6849494-2 (Version None)
Quarter: 2010Q3

REPORT INFORMATION
  Report Type: 
  Country: None (occurrence: None)
  Receive Date: 20100716
  Receipt Date: 20100615
  Transmission Date: 20110219
  Serious: Yes (Other)
  Sender: FDA-Public Use
  Company Number: US-PFIZER INC-2007082256

PATIENT
  Sex: Female
  Weight: 86.168 kg

DRUGS (10)
  1. CHANTIX [Suspect]
     Indication: SMOKING CESSATION THERAPY
     Dosage: 0.5 MG, 1X/DAY
     Route: 048
     Dates: start: 20090101, end: 20090101
  2. CHANTIX [Suspect]
     Dosage: 1 MG, 2X/DAY
  3. ADVAIR DISKUS 100/50 [Concomitant]
     Indication: CHRONIC OBSTRUCTIVE PULMONARY DISEASE
     Dosage: UNK
  4. SPIRIVA [Concomitant]
     Indication: CHRONIC OBSTRUCTIVE PULMONARY DISEASE
     Dosage: UNK
  5. COZAAR [Concomitant]
     Indication: HYPERTENSION
     Dosage: 100 MG DAILY
  6. ATENOLOL [Concomitant]
     Indication: HYPERTENSION
     Dosage: 100 MG DAILY
     Route: 048
  7. AMLODIPINE [Concomitant]
     Indication: HYPERTENSION
     Dosage: 10 MG DAILY
     Route: 048
  8. POTASSIUM CHLORIDE [Concomitant]
     Indication: BLOOD POTASSIUM DECREASED
     Dosage: 20 MG DAILY
     Route: 048
  9. POTASSIUM CHLORIDE [Concomitant]
     Indication: HYPERTENSION
  10. MULTI-VITAMINS [Concomitant]
     Dosage: UNK

REACTIONS (8)
  - ABNORMAL DREAMS [None]
  - DYSGEUSIA [None]
  - HEADACHE [None]
  - HYPERHIDROSIS [None]
  - IRRITABILITY [None]
  - MALAISE [None]
  - NAUSEA [None]
  - VITREOUS FLOATERS [None]
